FAERS Safety Report 7351232-4 (Version None)
Quarter: 2011Q1

REPORT INFORMATION
  Report Type: 
  Country: None (occurrence: None)
  Receive Date: 20110314
  Receipt Date: 20110308
  Transmission Date: 20110831
  Serious: Yes (Disabling)
  Sender: FDA-Public Use
  Company Number: US-PERRIGO-11US001823

PATIENT
  Sex: Female
  Weight: 67.12 kg

DRUGS (4)
  1. HERBAL PREPARATION [Concomitant]
     Indication: CONSTIPATION
     Dosage: UNK
     Route: 048
  2. KLONOPIN [Concomitant]
     Indication: INSOMNIA
     Dosage: UNK
     Route: 048
  3. LORATADINE [Suspect]
     Indication: INSOMNIA
     Dosage: 10 MG, QD
     Route: 048
     Dates: start: 20100301, end: 20110201
  4. LORATADINE [Suspect]
     Indication: SEASONAL ALLERGY

REACTIONS (3)
  - DIZZINESS [None]
  - VISION BLURRED [None]
  - OFF LABEL USE [None]
